FAERS Safety Report 18158386 (Version 1)
Quarter: 2020Q3

REPORT INFORMATION
  Report Type: Spontaneous
  Country: US (occurrence: US)
  Receive Date: 20200817
  Receipt Date: 20200817
  Transmission Date: 20201103
  Serious: Yes (Hospitalization)
  Sender: FDA-Public Use
  Company Number: US-MYLANLABS-2020M1071005

PATIENT
  Sex: Female
  Weight: 51 kg

DRUGS (1)
  1. ESTRADIOL TRANSDERMAL SYSTEM [Suspect]
     Active Substance: ESTRADIOL
     Indication: HOT FLUSH
     Dosage: 0.037 MILLIGRAM, QD
     Route: 062

REACTIONS (3)
  - Headache [Unknown]
  - Polyp [Recovering/Resolving]
  - Vaginal haemorrhage [Recovering/Resolving]
